FAERS Safety Report 7622155-8 (Version None)
Quarter: 2011Q3

REPORT INFORMATION
  Report Type: 
  Country: None (occurrence: None)
  Receive Date: 20110720
  Receipt Date: 20110420
  Transmission Date: 20111222
  Serious: Yes (Other)
  Sender: FDA-Public Use
  Company Number: US-BAYER-2011-034664

PATIENT
  Sex: Female

DRUGS (1)
  1. YAZ [Suspect]
     Dosage: UNK
     Dates: start: 20070101, end: 20100101

REACTIONS (11)
  - TRANSVERSE SINUS THROMBOSIS [None]
  - GALLBLADDER PAIN [None]
  - JUGULAR VEIN THROMBOSIS [None]
  - PAIN [None]
  - ANXIETY [None]
  - POST CHOLECYSTECTOMY SYNDROME [None]
  - SUPERIOR SAGITTAL SINUS THROMBOSIS [None]
  - ANHEDONIA [None]
  - PSYCHIATRIC SYMPTOM [None]
  - INJURY [None]
  - FEAR [None]
